FAERS Safety Report 17004714 (Version 2)
Quarter: 2019Q4

REPORT INFORMATION
  Report Type: Spontaneous
  Country: US (occurrence: US)
  Receive Date: 20191107
  Receipt Date: 20191113
  Transmission Date: 20200122
  Serious: No
  Sender: FDA-Public Use
  Company Number: US-PFIZER INC-2019477993

PATIENT
  Sex: Male

DRUGS (1)
  1. PROTONIX [Suspect]
     Active Substance: PANTOPRAZOLE SODIUM
     Indication: FLATULENCE
     Dosage: 40 MG, DAILY

REACTIONS (4)
  - Drug ineffective for unapproved indication [Unknown]
  - Flatulence [Unknown]
  - Abdominal pain [Unknown]
  - Condition aggravated [Unknown]
